FAERS Safety Report 9066045 (Version 1)
Quarter: 2013Q1

REPORT INFORMATION
  Report Type: Spontaneous
  Country: None (occurrence: US)
  Receive Date: 20130214
  Receipt Date: 20130214
  Transmission Date: 20140127
  Serious: Yes (Death, Other)
  Sender: FDA-Public Use
  Company Number: US-TEVA-385803USA

PATIENT
  Sex: 0

DRUGS (2)
  1. AZILECT [Suspect]
     Indication: PARKINSON^S DISEASE
     Dosage: 1 MILLIGRAM DAILY;
  2. PROZAC [Suspect]

REACTIONS (2)
  - Cardiac disorder [Fatal]
  - Serotonin syndrome [Unknown]
